FAERS Safety Report 23278722 (Version 2)
Quarter: 2024Q4

REPORT INFORMATION
  Report Type: Spontaneous
  Country: US (occurrence: US)
  Receive Date: 20231208
  Receipt Date: 20241206
  Transmission Date: 20250115
  Serious: No
  Sender: NOVO NORDISK
  Company Number: US-NOVOPROD-1088249

PATIENT
  Sex: Male

DRUGS (1)
  1. NOVOLIN R [Suspect]
     Active Substance: INSULIN HUMAN
     Indication: Blood glucose
     Dosage: 100 IU
     Route: 058

REACTIONS (5)
  - Rubber sensitivity [Unknown]
  - Pain [Unknown]
  - Muscle spasms [Unknown]
  - Injection site pain [Unknown]
  - Injection site rash [Unknown]
